FAERS Safety Report 19895745 (Version 1)
Quarter: 2021Q3

REPORT INFORMATION
  Report Type: Spontaneous
  Country: US (occurrence: US)
  Receive Date: 20210929
  Receipt Date: 20210929
  Transmission Date: 20211014
  Serious: No
  Sender: FDA-Public Use
  Company Number: US-GRANULES-US-2021GRASPO00488

PATIENT
  Age: 65 Year
  Sex: Female
  Weight: 200 kg

DRUGS (5)
  1. METFORMIN HCL [Suspect]
     Active Substance: METFORMIN HYDROCHLORIDE
     Indication: DIABETES MELLITUS
     Route: 048
     Dates: start: 20210730, end: 20210802
  2. CHANTIX [Concomitant]
     Active Substance: VARENICLINE TARTRATE
     Indication: EX-TOBACCO USER
     Route: 065
     Dates: start: 20210730, end: 20210807
  3. METFORMIN HCL [Suspect]
     Active Substance: METFORMIN HYDROCHLORIDE
     Route: 048
  4. LIPITOR [Concomitant]
     Active Substance: ATORVASTATIN CALCIUM
     Indication: PRODUCT USED FOR UNKNOWN INDICATION
     Route: 065
  5. TYLENOL [Interacting]
     Active Substance: ACETAMINOPHEN
     Indication: GINGIVAL PAIN
     Route: 065

REACTIONS (7)
  - Product use complaint [Unknown]
  - Product solubility abnormal [Unknown]
  - Suspected product quality issue [Unknown]
  - Product odour abnormal [Unknown]
  - Dysphagia [Unknown]
  - Nausea [Unknown]
  - Expired product administered [Unknown]
